FAERS Safety Report 13923360 (Version 1)
Quarter: 2017Q3

REPORT INFORMATION
  Report Type: Spontaneous
  Country: US (occurrence: US)
  Receive Date: 20170831
  Receipt Date: 20170831
  Transmission Date: 20171127
  Serious: Yes (Other)
  Sender: FDA-Public Use
  Company Number: US-AMGEN-USASP2017130739

PATIENT
  Sex: Female

DRUGS (1)
  1. NEULASTA [Suspect]
     Active Substance: PEGFILGRASTIM
     Indication: PRODUCT USED FOR UNKNOWN INDICATION
     Dosage: UNK
     Route: 065
     Dates: end: 201610

REACTIONS (5)
  - Pruritus [Unknown]
  - Breast cancer recurrent [Unknown]
  - Dermatitis allergic [Unknown]
  - Adverse drug reaction [Unknown]
  - Urticaria [Unknown]

NARRATIVE: CASE EVENT DATE: 2016
